FAERS Safety Report 14579237 (Version 1)
Quarter: 2018Q1

REPORT INFORMATION
  Report Type: Spontaneous
  Country: FR (occurrence: FR)
  Receive Date: 20180227
  Receipt Date: 20180227
  Transmission Date: 20180509
  Serious: Yes (Life-Threatening, Hospitalization, Disabling, Congenital Anomaly, Other)
  Sender: FDA-Public Use
  Company Number: FR-OTSUKA-KJ20062545

PATIENT

DRUGS (4)
  1. ABILIFY [Suspect]
     Active Substance: ARIPIPRAZOLE
     Route: 048
     Dates: start: 20060321
  2. ATHYMIL [Concomitant]
     Active Substance: MIANSERIN HYDROCHLORIDE
     Route: 065
     Dates: start: 20060112, end: 20061103
  3. STABLON [Concomitant]
     Active Substance: TIANEPTINE
     Route: 065
  4. ABILIFY [Suspect]
     Active Substance: ARIPIPRAZOLE
     Route: 048
     Dates: start: 20060309, end: 20060320

REACTIONS (3)
  - Overdose [Unknown]
  - Anxiety [Not Recovered/Not Resolved]
  - Suicide attempt [Not Recovered/Not Resolved]

NARRATIVE: CASE EVENT DATE: 200610
